FAERS Safety Report 9840025 (Version 1)
Quarter: 2014Q1

REPORT INFORMATION
  Report Type: Report from Study
  Country: GB (occurrence: GB)
  Receive Date: 20140124
  Receipt Date: 20140124
  Transmission Date: 20141002
  Serious: Yes (Death)
  Sender: FDA-Public Use
  Company Number: GB-ROCHE-1338359

PATIENT
  Age: 82 Year
  Sex: Male

DRUGS (2)
  1. RITUXIMAB [Suspect]
     Indication: RHEUMATOID ARTHRITIS
     Route: 065
     Dates: start: 20080815, end: 20090715
  2. HYDROXYCHLOROQUINE [Concomitant]
     Dosage: START DATE: PRE RITUXIMAB
     Route: 065

REACTIONS (1)
  - Death [Fatal]
